FAERS Safety Report 9782577 (Version 1)
Quarter: 2013Q4

REPORT INFORMATION
  Report Type: Spontaneous
  Country: AN (occurrence: None)
  Receive Date: 20131220
  Receipt Date: 20131220
  Transmission Date: 20140711
  Serious: Yes (Hospitalization)
  Sender: FDA-Public Use
  Company Number: 2013P1021936

PATIENT
  Age: 45 Year
  Sex: Male

DRUGS (3)
  1. AMOXICILLIN + CLAVULANATE POTASSIUM [Suspect]
     Indication: PYREXIA
  2. AMOXICILLIN + CLAVULANATE POTASSIUM [Suspect]
     Indication: LYMPHADENOPATHY
  3. AMOXICILLIN + CLAVULANATE POTASSIUM [Suspect]
     Indication: RASH

REACTIONS (5)
  - Drug reaction with eosinophilia and systemic symptoms [None]
  - Giardiasis [None]
  - Toxocariasis [None]
  - Hypersensitivity [None]
  - Ascariasis [None]
